FAERS Safety Report 24164832 (Version 1)
Quarter: 2024Q3

REPORT INFORMATION
  Report Type: Spontaneous
  Country: CN (occurrence: CN)
  Receive Date: 20240801
  Receipt Date: 20240801
  Transmission Date: 20241016
  Serious: Yes (Other)
  Sender: BEIGENE
  Company Number: CN-BEIGENE-BGN-2024-011591

PATIENT

DRUGS (6)
  1. TISLELIZUMAB [Suspect]
     Active Substance: TISLELIZUMAB
     Indication: Gastric cancer recurrent
     Dosage: 200 MILLIGRAM D1
     Route: 041
     Dates: start: 20240618
  2. TISLELIZUMAB [Suspect]
     Active Substance: TISLELIZUMAB
     Indication: Metastases to abdominal cavity
  3. OXALIPLATIN [Suspect]
     Active Substance: OXALIPLATIN
     Indication: Metastases to abdominal cavity
     Dosage: 220 MILLIGRAM D1
     Route: 041
     Dates: start: 20240618
  4. OXALIPLATIN [Suspect]
     Active Substance: OXALIPLATIN
     Indication: Gastric cancer recurrent
  5. CAPECITABINE [Suspect]
     Active Substance: CAPECITABINE
     Indication: Metastases to abdominal cavity
     Dosage: 1.5 GRAM, BID D1-14
     Route: 048
     Dates: start: 20240618
  6. CAPECITABINE [Suspect]
     Active Substance: CAPECITABINE
     Indication: Gastric cancer recurrent

REACTIONS (1)
  - Myelosuppression [Unknown]

NARRATIVE: CASE EVENT DATE: 20240714
